FAERS Safety Report 22175729 (Version 12)
Quarter: 2024Q2

REPORT INFORMATION
  Report Type: Other
  Country: IT (occurrence: None)
  Receive Date: 20230405
  Receipt Date: 20240420
  Transmission Date: 20240716
  Serious: Yes (Hospitalization, Other)
  Sender: FDA-Public Use
  Company Number: IT-ROCHE-3314499

PATIENT
  Age: 65 Year
  Sex: Female
  Weight: 61 kg

DRUGS (30)
  1. ALECTINIB [Suspect]
     Active Substance: ALECTINIB
     Indication: Non-small cell lung cancer metastatic
     Dosage: DOSE LAST STUDY DRUG ADMIN PRIOR AE/SAE WAS 600 MG. START DATE OF MOST RECENT DOSE OF STUDY DRUG PRI
     Route: 048
     Dates: start: 20221201
  2. DEXAMETHASONE SODIUM PHOSPHATE [Concomitant]
     Active Substance: DEXAMETHASONE PHOSPHATE\DEXAMETHASONE SODIUM PHOSPHATE
     Indication: Hypertension
     Route: 048
     Dates: end: 20221201
  3. DEXAMETHASONE SODIUM PHOSPHATE [Concomitant]
     Active Substance: DEXAMETHASONE PHOSPHATE\DEXAMETHASONE SODIUM PHOSPHATE
     Route: 048
     Dates: start: 20221202, end: 20230316
  4. PANTOPRAZOLE [Concomitant]
     Active Substance: PANTOPRAZOLE
     Indication: Prophylaxis
     Route: 048
  5. RAMIPRIL [Concomitant]
     Active Substance: RAMIPRIL
     Indication: Hypertension
     Route: 048
  6. ATENOLOL [Concomitant]
     Active Substance: ATENOLOL
     Indication: Hypertension
     Route: 048
  7. ASPIRIN [Concomitant]
     Active Substance: ASPIRIN
     Indication: Prophylaxis
     Route: 048
     Dates: start: 20221201
  8. SYNJARDY [Concomitant]
     Active Substance: EMPAGLIFLOZIN\METFORMIN HYDROCHLORIDE
     Indication: Diabetes mellitus
     Route: 048
  9. LEVOTHYROXINE SODIUM [Concomitant]
     Active Substance: LEVOTHYROXINE SODIUM
     Indication: Hypothyroidism
     Route: 048
     Dates: end: 20230201
  10. LEVOTHYROXINE SODIUM [Concomitant]
     Active Substance: LEVOTHYROXINE SODIUM
     Route: 048
     Dates: start: 20230201, end: 20230315
  11. LEVOTHYROXINE SODIUM [Concomitant]
     Active Substance: LEVOTHYROXINE SODIUM
     Route: 048
     Dates: start: 20230316
  12. METFORMIN HYDROCHLORIDE [Concomitant]
     Active Substance: METFORMIN HYDROCHLORIDE
     Indication: Diabetes mellitus
     Route: 048
  13. AMLODIPINE [Concomitant]
     Active Substance: AMLODIPINE BESYLATE
     Indication: Hypertension
     Route: 048
     Dates: start: 20221201, end: 20221214
  14. DOXYCYCLINE [Concomitant]
     Active Substance: DOXYCYCLINE
     Indication: Prophylaxis
     Route: 048
     Dates: start: 20221221, end: 20240316
  15. LYRICA [Concomitant]
     Active Substance: PREGABALIN
     Indication: Prophylaxis
     Route: 048
     Dates: start: 20230201, end: 20230316
  16. HUMALOG [Concomitant]
     Active Substance: INSULIN LISPRO
     Indication: Diabetes mellitus
     Route: 058
     Dates: start: 20230205, end: 20230222
  17. PREGABALIN [Concomitant]
     Active Substance: PREGABALIN
     Indication: Pain
     Route: 048
     Dates: start: 20230222, end: 20230316
  18. MORPHINE [Concomitant]
     Active Substance: MORPHINE
     Indication: Pain
     Route: 048
     Dates: start: 20230205, end: 20230222
  19. FENTANYL [Concomitant]
     Active Substance: FENTANYL\FENTANYL CITRATE
     Indication: Pain
     Route: 061
     Dates: start: 20230205, end: 20230222
  20. FENTANYL [Concomitant]
     Active Substance: FENTANYL\FENTANYL CITRATE
     Dosage: 50 OTHER
     Route: 061
     Dates: start: 20230526
  21. GLARINE [Concomitant]
     Indication: Diabetes mellitus
     Route: 058
     Dates: start: 20230205, end: 20230330
  22. GLARINE [Concomitant]
     Route: 058
     Dates: start: 20230330
  23. DEXAMETHASONE [Concomitant]
     Active Substance: DEXAMETHASONE
     Indication: Inflammation
     Route: 048
     Dates: start: 20220222, end: 20230316
  24. DEXAMETHASONE [Concomitant]
     Active Substance: DEXAMETHASONE
     Route: 048
     Dates: start: 20230330
  25. INSULIN NOS [Concomitant]
     Active Substance: INSULIN NOS
     Indication: Diabetes mellitus
     Route: 058
     Dates: start: 20230205, end: 20230330
  26. INSULIN NOS [Concomitant]
     Active Substance: INSULIN NOS
     Route: 058
     Dates: start: 20230330
  27. ACETAMINOPHEN [Concomitant]
     Active Substance: ACETAMINOPHEN
     Indication: Pain
     Route: 048
     Dates: start: 20230316
  28. TOUJEO [Concomitant]
     Active Substance: INSULIN GLARGINE
     Indication: Diabetes mellitus
     Dosage: 6 U
     Route: 058
     Dates: start: 20230526
  29. NALOXONE HYDROCHLORIDE\OXYCODONE HYDROCHLORIDE [Concomitant]
     Active Substance: NALOXONE HYDROCHLORIDE\OXYCODONE HYDROCHLORIDE
     Indication: Pain
     Route: 048
     Dates: start: 20230526
  30. MORPHINE SULFATE [Concomitant]
     Active Substance: MORPHINE SULFATE
     Indication: Pain
     Route: 048
     Dates: start: 20230526

REACTIONS (8)
  - Ulcer [Not Recovered/Not Resolved]
  - Coma [Recovered/Resolved]
  - Sepsis [Recovered/Resolved]
  - Urinary retention [Recovered/Resolved]
  - Vulvovaginitis [Recovered/Resolved]
  - Infected skin ulcer [Recovered/Resolved]
  - Oedema [Recovered/Resolved]
  - Candida infection [Recovered/Resolved]

NARRATIVE: CASE EVENT DATE: 20221214
